FAERS Safety Report 6620544-1 (Version None)
Quarter: 2010Q1

REPORT INFORMATION
  Report Type: 
  Country: None (occurrence: None)
  Receive Date: 20100309
  Receipt Date: 20100303
  Transmission Date: 20100710
  Serious: Yes (Other)
  Sender: FDA-Public Use
  Company Number: US-ELI_LILLY_AND_COMPANY-US201003001382

PATIENT
  Sex: Female

DRUGS (8)
  1. HUMALOG MIX 75/25 [Suspect]
     Dosage: 42 U, EACH MORNING
  2. HUMALOG MIX 75/25 [Suspect]
     Dosage: 27 U, EACH EVENING
  3. HUMALOG MIX 75/25 [Suspect]
     Dosage: 42 U, EACH MORNING
  4. HUMALOG MIX 75/25 [Suspect]
     Dosage: 27 U, EACH EVENING
  5. HUMALOG MIX 75/25 [Suspect]
     Dosage: 42 U, EACH MORNING
  6. HUMALOG MIX 75/25 [Suspect]
     Dosage: 27 U, EACH EVENING
  7. HUMALOG MIX 75/25 [Suspect]
     Dosage: 42 U, EACH MORNING
  8. HUMALOG MIX 75/25 [Suspect]
     Dosage: 27 U, EACH EVENING

REACTIONS (5)
  - BACK PAIN [None]
  - CORONARY ARTERY BYPASS [None]
  - MACULAR DEGENERATION [None]
  - MEDICATION ERROR [None]
  - SPINAL OSTEOARTHRITIS [None]
